FAERS Safety Report 4641547-2 (Version None)
Quarter: 2005Q2

REPORT INFORMATION
  Report Type: 
  Country: None (occurrence: None)
  Receive Date: 20050421
  Receipt Date: 20050412
  Transmission Date: 20051028
  Serious: Yes (Death)
  Sender: FDA-Public Use
  Company Number: US-JNJFOC-20050403185

PATIENT
  Age: 86 Year
  Sex: Female

DRUGS (2)
  1. RISPERDAL [Suspect]
     Route: 049
     Dates: start: 20000601, end: 20010701
  2. RISPERDAL [Suspect]
     Indication: VASCULAR DEMENTIA
     Route: 049
     Dates: start: 20000601, end: 20010701

REACTIONS (4)
  - CARDIAC FAILURE CONGESTIVE [None]
  - PNEUMONIA [None]
  - PNEUMONIA ASPIRATION [None]
  - SICK SINUS SYNDROME [None]
